FAERS Safety Report 6647476-7 (Version None)
Quarter: 2010Q1

REPORT INFORMATION
  Report Type: 
  Country: None (occurrence: None)
  Receive Date: 20100323
  Receipt Date: 20100323
  Transmission Date: 20100710
  Serious: No
  Sender: FDA-Public Use
  Company Number: None

PATIENT
  Age: 67 Year
  Sex: Male
  Weight: 134.1 kg

DRUGS (2)
  1. FENTANYL-100 [Suspect]
     Dosage: 200 MCG ONCE IV
     Route: 042
     Dates: start: 20090209, end: 20090209
  2. MIDAZOLAM HCL [Suspect]
     Dosage: 8 MG ONCE IV
     Route: 042
     Dates: start: 20090209, end: 20090209

REACTIONS (3)
  - HYPOTENSION [None]
  - LETHARGY [None]
  - SEDATION [None]
